FAERS Safety Report 24552615 (Version 1)
Quarter: 2024Q4

REPORT INFORMATION
  Report Type: Report from Study
  Country: CA (occurrence: CA)
  Receive Date: 20241026
  Receipt Date: 20241026
  Transmission Date: 20250115
  Serious: Yes (Hospitalization, Other)
  Sender: ALEXION PHARMACEUTICALS
  Company Number: CA-AstraZeneca-2024A084675

PATIENT
  Age: 61 Year

DRUGS (8)
  1. LYNPARZA [Suspect]
     Active Substance: OLAPARIB
     Indication: Ovarian cancer
     Dosage: 150 MILLIGRAM, QD
  2. LYNPARZA [Suspect]
     Active Substance: OLAPARIB
     Dosage: 150 MILLIGRAM, QD
  3. LYNPARZA [Suspect]
     Active Substance: OLAPARIB
     Dosage: 150 MILLIGRAM, QD
  4. LYNPARZA [Suspect]
     Active Substance: OLAPARIB
     Dosage: 150 MILLIGRAM, QD
  5. LYNPARZA [Suspect]
     Active Substance: OLAPARIB
     Dosage: 1 100 MG PILL IN THE MORNING AND 1 150 MG IN THE EVENING
  6. LYNPARZA [Suspect]
     Active Substance: OLAPARIB
     Dosage: 1 100 MG PILL IN THE MORNING AND 1 150 MG IN THE EVENING
  7. LYNPARZA [Suspect]
     Active Substance: OLAPARIB
     Dosage: 1 100 MG PILL IN THE MORNING AND 1 150 MG IN THE EVENING
  8. LYNPARZA [Suspect]
     Active Substance: OLAPARIB
     Dosage: 1 100 MG PILL IN THE MORNING AND 1 150 MG IN THE EVENING

REACTIONS (8)
  - Red blood cell count decreased [Unknown]
  - COVID-19 [Unknown]
  - Syncope [Unknown]
  - Palpitations [Unknown]
  - Headache [Unknown]
  - Nausea [Unknown]
  - Fatigue [Unknown]
  - Anaemia [Recovered/Resolved]
